FAERS Safety Report 9103104 (Version 2)
Quarter: 2013Q1

REPORT INFORMATION
  Report Type: Spontaneous
  Country: BR (occurrence: BR)
  Receive Date: 20130219
  Receipt Date: 20130321
  Transmission Date: 20140127
  Serious: Yes (Other)
  Sender: FDA-Public Use
  Company Number: BR-ELI_LILLY_AND_COMPANY-BR201302002148

PATIENT
  Sex: Female
  Weight: 55 kg

DRUGS (6)
  1. FORTEO [Suspect]
     Dosage: 1 UNK, UNK
     Route: 065
     Dates: start: 201301
  2. FORTEO [Suspect]
     Dosage: 2 UG, QD
     Route: 065
  3. FORTEO [Suspect]
     Dosage: 1 UG, QD
     Route: 065
  4. CONDROFLEX [Concomitant]
     Dosage: UNK, UNKNOWN
     Route: 065
  5. DAFLON [Concomitant]
     Indication: THROMBOSIS
     Dosage: UNK, UNKNOWN
     Route: 065
  6. CALTREN [Concomitant]
     Dosage: UNK, UNKNOWN
     Route: 065

REACTIONS (9)
  - Thrombosis [Unknown]
  - Asthenia [Not Recovered/Not Resolved]
  - Hyperhidrosis [Not Recovered/Not Resolved]
  - Abdominal pain [Not Recovered/Not Resolved]
  - Nodule [Unknown]
  - Local swelling [Unknown]
  - Local swelling [Unknown]
  - Nodule [Unknown]
  - Underdose [Unknown]
